FAERS Safety Report 4274550-5 (Version None)
Quarter: 2004Q1

REPORT INFORMATION
  Report Type: 
  Country: None (occurrence: None)
  Receive Date: 20040120
  Receipt Date: 20040120
  Transmission Date: 20041129
  Serious: Yes (Hospitalization)
  Sender: FDA-Public Use
  Company Number: None

PATIENT
  Age: 42 Year
  Sex: Male
  Weight: 72.5755 kg

DRUGS (5)
  1. TRISENOX [Suspect]
     Indication: OESOPHAGEAL CARCINOMA
     Dosage: IN 250ML NS IV OVER 2 HOURS
     Route: 042
  2. FLUOROURACIL [Suspect]
     Dosage: 807 MG IV OVER 15 MINUTES
  3. PHENERGAN HCL [Concomitant]
  4. PROTONIX [Concomitant]
  5. PERCOCET [Concomitant]

REACTIONS (8)
  - BLOOD PRESSURE DECREASED [None]
  - CHILLS [None]
  - HEART RATE INCREASED [None]
  - NEUTROPENIA [None]
  - PURULENT DISCHARGE [None]
  - PYREXIA [None]
  - RESPIRATORY RATE INCREASED [None]
  - WOUND SECRETION [None]
